FAERS Safety Report 4789908-5 (Version None)
Quarter: 2005Q4

REPORT INFORMATION
  Report Type: 
  Country: None (occurrence: None)
  Receive Date: 20051006
  Receipt Date: 20050920
  Transmission Date: 20060501
  Serious: No
  Sender: FDA-Public Use
  Company Number: AU-GLAXOSMITHKLINE-B0395563A

PATIENT
  Age: 2 Year
  Sex: Male
  Weight: 12 kg

DRUGS (2)
  1. PANADOL RAPID [Suspect]
     Route: 048
     Dates: start: 20050920
  2. ACETAMINOPHEN [Suspect]
     Route: 065
     Dates: start: 20050901

REACTIONS (1)
  - ACCIDENTAL OVERDOSE [None]
